FAERS Safety Report 25914351 (Version 1)
Quarter: 2025Q4

REPORT INFORMATION
  Report Type: Spontaneous
  Country: US (occurrence: US)
  Receive Date: 20251013
  Receipt Date: 20251013
  Transmission Date: 20260117
  Serious: No
  Sender: ROCHE
  Company Number: US-ROCHE-10000406148

PATIENT
  Sex: Female

DRUGS (4)
  1. OMALIZUMAB [Suspect]
     Active Substance: OMALIZUMAB
     Indication: Urticaria chronic
     Route: 065
  2. FEXOFENADINE [Concomitant]
     Active Substance: FEXOFENADINE HYDROCHLORIDE
  3. FAMOTIDINE [Concomitant]
     Active Substance: FAMOTIDINE
  4. MONTELUKAST [Concomitant]
     Active Substance: MONTELUKAST

REACTIONS (2)
  - Drug ineffective [Unknown]
  - No adverse event [Unknown]
